FAERS Safety Report 9333066 (Version 1)
Quarter: 2013Q2

REPORT INFORMATION
  Report Type: Spontaneous
  Country: JP (occurrence: JP)
  Receive Date: 20130606
  Receipt Date: 20130606
  Transmission Date: 20140414
  Serious: Yes (Hospitalization, Disabling, Other)
  Sender: FDA-Public Use
  Company Number: JP-PFIZER INC-2013133179

PATIENT
  Age: 75 Year
  Sex: Female
  Weight: 53 kg

DRUGS (13)
  1. FARMORUBICIN [Suspect]
     Indication: BREAST CANCER
     Dosage: 84 MG, 1X/DAY
     Route: 042
     Dates: start: 20130110, end: 20130314
  2. ENDOXAN [Suspect]
     Indication: BREAST CANCER
     Dosage: 840 MG, 1X/DAY
     Route: 042
     Dates: start: 20130110, end: 20130314
  3. PLAVIX [Concomitant]
     Indication: CEREBRAL INFARCTION
     Dosage: 75 MG, 1X/DAY
     Route: 048
  4. BLOPRESS [Concomitant]
     Indication: HYPERTENSION
     Dosage: 4 MG, 1X/DAY
     Route: 048
  5. LOCHOL [Concomitant]
     Indication: HYPERLIPIDAEMIA
     Dosage: 20 MG, 1X/DAY
     Route: 048
  6. EMEND [Concomitant]
     Indication: BREAST CANCER
     Dosage: 125 MG, 1X/DAY
     Route: 048
     Dates: start: 20130110, end: 20130314
  7. EMEND [Concomitant]
     Dosage: 80 MG, 1X/DAY
     Route: 048
     Dates: start: 20130110, end: 20130314
  8. DECADRON [Concomitant]
     Indication: BREAST CANCER
     Dosage: 6.6 MG, 1X/DAY
     Route: 042
     Dates: start: 20130110, end: 20130314
  9. DECADRON [Concomitant]
     Dosage: 3.3 MG, 1X/DAY
     Route: 042
     Dates: start: 20130110, end: 20130314
  10. FORSENID [Concomitant]
     Indication: BREAST CANCER
     Dosage: 12 MG, 2X/DAY
     Route: 048
     Dates: start: 20130110, end: 20130320
  11. ALOXI [Concomitant]
     Indication: BREAST CANCER
     Dosage: 0.75 MG, 1X/DAY
     Route: 042
     Dates: start: 20130110, end: 20130314
  12. DECADRON [Concomitant]
     Indication: BREAST CANCER
     Dosage: 0.5 MG EIGHT TIMES DAILY
     Route: 048
     Dates: start: 20130111, end: 20130317
  13. NAUZELIN [Concomitant]
     Indication: BREAST CANCER
     Dosage: 10 MG, 3X/DAY
     Route: 048
     Dates: start: 20130111, end: 20130321

REACTIONS (1)
  - Interstitial lung disease [Not Recovered/Not Resolved]
